FAERS Safety Report 10077116 (Version 3)
Quarter: 2014Q3

REPORT INFORMATION
  Report Type: Report from Study
  Country: IE (occurrence: IE)
  Receive Date: 20140414
  Receipt Date: 20140724
  Transmission Date: 20150326
  Serious: Yes (Life-Threatening, Hospitalization)
  Sender: FDA-Public Use
  Company Number: US-ASTRAZENECA-2014SE00373

PATIENT
  Age: 71 Day
  Sex: Male
  Weight: 4.1 kg

DRUGS (5)
  1. VITAMINS NOS [Concomitant]
     Active Substance: VITAMINS
     Indication: PRODUCT USED FOR UNKNOWN INDICATION
  2. VITAMINS ABIDEC [Concomitant]
     Indication: PREMATURE BABY
     Route: 048
  3. GAVISCON [Concomitant]
     Active Substance: ALUMINUM HYDROXIDE\MAGNESIUM CARBONATE
     Indication: PRODUCT USED FOR UNKNOWN INDICATION
     Dosage: 1/2 SACHET IN EACH BOTTLE, 0.5 DF
  4. SYNAGIS [Suspect]
     Active Substance: PALIVIZUMAB
     Indication: PREMATURE BABY
     Route: 030
     Dates: start: 20131127
  5. IRON [Concomitant]
     Active Substance: IRON
     Indication: PREMATURE BABY
     Route: 048

REACTIONS (4)
  - Hypotonia [Recovered/Resolved]
  - Apparent life threatening event [Recovered/Resolved]
  - Pallor [Recovered/Resolved]
  - Apnoea [Recovered/Resolved]

NARRATIVE: CASE EVENT DATE: 20131130
